FAERS Safety Report 13693506 (Version 1)
Quarter: 2017Q2

REPORT INFORMATION
  Report Type: Spontaneous
  Country: US (occurrence: US)
  Receive Date: 20170627
  Receipt Date: 20170627
  Transmission Date: 20170830
  Serious: Yes (Other)
  Sender: FDA-Public Use
  Company Number: US-BAYER-2017-121682

PATIENT
  Age: 79 Year
  Sex: Female

DRUGS (1)
  1. BETASERON [Suspect]
     Active Substance: INTERFERON BETA-1B
     Indication: MULTIPLE SCLEROSIS
     Dosage: 0.25 MG, QOD
     Dates: start: 1995

REACTIONS (5)
  - Injection site erythema [None]
  - Paraplegia [None]
  - Headache [None]
  - Influenza like illness [None]
  - Thyroid disorder [None]

NARRATIVE: CASE EVENT DATE: 2002
